FAERS Safety Report 8426010-5 (Version None)
Quarter: 2012Q2

REPORT INFORMATION
  Report Type: 
  Country: None (occurrence: None)
  Receive Date: 20120611
  Receipt Date: 20120606
  Transmission Date: 20120825
  Serious: Yes (Death, Hospitalization)
  Sender: FDA-Public Use
  Company Number: US-CELGENEUS-163-50794-12060747

PATIENT
  Age: 82 Year
  Sex: Male
  Weight: 65.058 kg

DRUGS (10)
  1. ACYCLOVIR [Concomitant]
     Dosage: 400 MILLIGRAM
     Route: 065
  2. CIPROFLOXACIN [Concomitant]
     Dosage: 500 MILLIGRAM
     Route: 065
  3. METOPROLOL TARTRATE [Concomitant]
     Dosage: 25 MILLIGRAM
     Route: 065
  4. OMEPRAZOLE [Concomitant]
     Dosage: 40 MILLIGRAM
     Route: 065
  5. HYDROXYUREA [Suspect]
     Dosage: 1500 MILLIGRAM
     Route: 048
     Dates: start: 20120105
  6. VIDAZA [Suspect]
     Dosage: 75 MILLIGRAM/SQ. METER
     Dates: start: 20120105, end: 20120125
  7. GEMTUZUMAB OZOGAMICIN [Suspect]
     Dosage: 3 MILLIGRAM/SQ. METER
     Route: 041
     Dates: start: 20120105, end: 20120126
  8. GLUCOSE OXIDASE [Concomitant]
     Dosage: 30 MILLILITER
     Route: 065
  9. GABAPENTIN [Concomitant]
     Dosage: 400 MILLIGRAM
     Route: 065
  10. FLUCONAZOLE [Concomitant]
     Dosage: 200 MILLIGRAM
     Route: 065

REACTIONS (1)
  - SEPSIS [None]
